FAERS Safety Report 17991764 (Version 3)
Quarter: 2020Q3

REPORT INFORMATION
  Report Type: Spontaneous
  Country: PL (occurrence: PL)
  Receive Date: 20200707
  Receipt Date: 20200811
  Transmission Date: 20201103
  Serious: Yes (Other)
  Sender: FDA-Public Use
  Company Number: PL-BAUSCH-BL-2020-018615

PATIENT
  Sex: Male

DRUGS (15)
  1. DOXORUBICIN HYDROCHLORIDE. [Suspect]
     Active Substance: DOXORUBICIN HYDROCHLORIDE
     Indication: B-CELL LYMPHOMA
     Dosage: 1ST LINE TREATMENT
     Route: 065
     Dates: start: 20191008
  2. BENDAMUSTINE HYDROCHLORIDE. [Suspect]
     Active Substance: BENDAMUSTINE HYDROCHLORIDE
     Indication: B-CELL LYMPHOMA
     Dosage: CYCLIC (2ND LINE TREATMENT, CYCLE 5)
     Route: 042
     Dates: start: 20200609
  3. GAZYVARO [Suspect]
     Active Substance: OBINUTUZUMAB
     Dosage: 2ND LINE TREATMENT, CYCLE 2, CYCLIC
     Route: 042
     Dates: start: 20200228
  4. PREDNISOLONE. [Suspect]
     Active Substance: PREDNISOLONE
     Indication: B-CELL LYMPHOMA
     Dosage: 1ST LINE TREATMENT
     Route: 065
     Dates: start: 20191008
  5. GAZYVARO [Suspect]
     Active Substance: OBINUTUZUMAB
     Dosage: 2ND LINE TREATMENT, CYCLE 4, CYCLIC
     Route: 042
     Dates: start: 20200506
  6. GAZYVARO [Suspect]
     Active Substance: OBINUTUZUMAB
     Dosage: CYCLIC (2ND LINE TREATMENT, CYCLE 3)
     Route: 042
     Dates: start: 20200330
  7. BENDAMUSTINE HYDROCHLORIDE. [Suspect]
     Active Substance: BENDAMUSTINE HYDROCHLORIDE
     Dosage: CYCLIC, 2ND LINE TREATMENT, CYCLE 4
     Route: 042
     Dates: start: 20200506
  8. VINCRISTINE [Suspect]
     Active Substance: VINCRISTINE
     Indication: B-CELL LYMPHOMA
     Dosage: 1ST LINE TREATMENT
     Route: 065
     Dates: start: 20191008
  9. MABTHERA [Suspect]
     Active Substance: RITUXIMAB
     Indication: B-CELL LYMPHOMA
     Dosage: 1ST LINE TREATMENT
     Route: 065
     Dates: start: 20191008
  10. BENDAMUSTINE HYDROCHLORIDE. [Suspect]
     Active Substance: BENDAMUSTINE HYDROCHLORIDE
     Dosage: CYCLIC (2ND LINE TREATMENT, CYCLE 3)
     Route: 042
     Dates: start: 20200330
  11. BENDAMUSTINE HYDROCHLORIDE. [Suspect]
     Active Substance: BENDAMUSTINE HYDROCHLORIDE
     Dosage: 2ND LINE TREATMENT, CYCLE 2, CYCLIC
     Route: 042
     Dates: start: 20200228
  12. CYCLOPHOSPHAMIDE. [Suspect]
     Active Substance: CYCLOPHOSPHAMIDE
     Indication: B-CELL LYMPHOMA
     Dosage: 1ST LINE TREATMENT
     Route: 065
     Dates: start: 20191008
  13. BENDAMUSTINE HYDROCHLORIDE. [Suspect]
     Active Substance: BENDAMUSTINE HYDROCHLORIDE
     Dosage: CYCLIC (2ND LINE TREATMENT)
     Route: 042
     Dates: start: 20200131
  14. GAZYVARO [Suspect]
     Active Substance: OBINUTUZUMAB
     Indication: B-CELL LYMPHOMA
     Dosage: 2ND LINE TREATMENT, CYCLE 5, CYCLIC
     Route: 042
     Dates: start: 20200609
  15. GAZYVARO [Suspect]
     Active Substance: OBINUTUZUMAB
     Dosage: CYCLIC (2ND LINE TREATMENT)
     Route: 042
     Dates: start: 20200131

REACTIONS (5)
  - Feeling cold [Recovered/Resolved]
  - Product use issue [Unknown]
  - Drug resistance [Unknown]
  - Neutropenia [Unknown]
  - Granulocytopenia [Unknown]

NARRATIVE: CASE EVENT DATE: 2020
